FAERS Safety Report 21123600 (Version 1)
Quarter: 2022Q3

REPORT INFORMATION
  Report Type: Other
  Country: JP (occurrence: JP)
  Receive Date: 20220725
  Receipt Date: 20220725
  Transmission Date: 20221027
  Serious: Yes (Hospitalization, Other)
  Sender: FDA-Public Use
  Company Number: JP-DEXPHARM-20221166

PATIENT
  Age: 77 Year
  Sex: Male

DRUGS (13)
  1. ASPIRIN [Interacting]
     Active Substance: ASPIRIN
     Dosage: ENTERIC-COATED ASPIRIN 100 MG
  2. LANSOPRAZOLE [Interacting]
     Active Substance: LANSOPRAZOLE
     Dosage: 15 MG
  3. WARFARIN [Concomitant]
     Active Substance: WARFARIN
     Dosage: 3.5 MG
  4. VERAPAMIL [Concomitant]
     Active Substance: VERAPAMIL HYDROCHLORIDE
     Dosage: 120 MG
  5. CARVEDILOL [Concomitant]
     Active Substance: CARVEDILOL
     Dosage: 10 MG
  6. GLIMEPIRIDE [Concomitant]
     Active Substance: GLIMEPIRIDE
     Dosage: 1 MG
  7. SITAGLIPTIN [Concomitant]
     Active Substance: SITAGLIPTIN
     Dosage: 50 MG
  8. IMIDAPRIL [Concomitant]
     Active Substance: IMIDAPRIL
     Dosage: 5 MG
  9. ROSUVASTATIN [Concomitant]
     Active Substance: ROSUVASTATIN
     Dosage: 5 MG
  10. LEVOTHYROXINE [Concomitant]
     Active Substance: LEVOTHYROXINE
     Dosage: 25 ?G
  11. NAFTOPIDIL [Concomitant]
     Active Substance: NAFTOPIDIL
     Dosage: 25 MG
  12. MAGNESIUM [Concomitant]
     Active Substance: MAGNESIUM
     Dosage: 500 MG
  13. FEBUXOSTAT [Concomitant]
     Active Substance: FEBUXOSTAT
     Dosage: 20 MG

REACTIONS (4)
  - Drug interaction [Recovered/Resolved]
  - Ischaemia [Recovered/Resolved]
  - Small intestinal perforation [Recovered/Resolved]
  - Abscess [Recovered/Resolved]
